FAERS Safety Report 5675246-5 (Version None)
Quarter: 2008Q1

REPORT INFORMATION
  Report Type: 
  Country: None (occurrence: None)
  Receive Date: 20080320
  Receipt Date: 20080310
  Transmission Date: 20080703
  Serious: Yes (Hospitalization)
  Sender: FDA-Public Use
  Company Number: FR-ELI_LILLY_AND_COMPANY-FR200803002776

PATIENT
  Age: 77 Year
  Sex: Female

DRUGS (2)
  1. EVISTA [Suspect]
     Indication: OSTEOPOROSIS
  2. LIPANTHYL [Concomitant]
     Indication: HYPERCHOLESTEROLAEMIA

REACTIONS (1)
  - HAEMORRHAGIC STROKE [None]
